FAERS Safety Report 23578514 (Version 1)
Quarter: 2024Q1

REPORT INFORMATION
  Report Type: Spontaneous
  Country: CN (occurrence: CN)
  Receive Date: 20240229
  Receipt Date: 20240229
  Transmission Date: 20240410
  Serious: Yes (Other)
  Sender: FDA-Public Use
  Company Number: CN-HALEON-CNCH2024APC009691

PATIENT

DRUGS (1)
  1. DICLOFENAC SODIUM [Suspect]
     Active Substance: DICLOFENAC\DICLOFENAC SODIUM
     Indication: Patella fracture
     Dosage: 75 MG, QD
     Route: 048
     Dates: start: 20240108, end: 20240116

REACTIONS (2)
  - Hepatic function abnormal [Recovering/Resolving]
  - Post-traumatic stress disorder [Recovering/Resolving]

NARRATIVE: CASE EVENT DATE: 20240115
